FAERS Safety Report 14308341 (Version 5)
Quarter: 2019Q1

REPORT INFORMATION
  Report Type: Report from Study
  Country: None (occurrence: US)
  Receive Date: 20171220
  Receipt Date: 20190323
  Transmission Date: 20190417
  Serious: Yes (Other)
  Sender: FDA-Public Use
  Company Number: US-ABBVIE-16K-163-1761222-00

PATIENT
  Age: 64 Year
  Sex: Female
  Weight: 89.89 kg

DRUGS (15)
  1. ARAVA [Concomitant]
     Active Substance: LEFLUNOMIDE
     Indication: PSORIATIC ARTHROPATHY
  2. GABAPENTIN. [Concomitant]
     Active Substance: GABAPENTIN
     Indication: PAIN
  3. TIZANIDINE. [Concomitant]
     Active Substance: TIZANIDINE
     Indication: INFLAMMATION
  4. HUMIRA [Suspect]
     Active Substance: ADALIMUMAB
     Indication: PSORIATIC ARTHROPATHY
     Route: 058
     Dates: start: 20151225, end: 201609
  5. TIZANIDINE. [Concomitant]
     Active Substance: TIZANIDINE
     Indication: PAIN
  6. LEFLUNOMIDE. [Concomitant]
     Active Substance: LEFLUNOMIDE
     Indication: PSORIATIC ARTHROPATHY
  7. HUMIRA [Suspect]
     Active Substance: ADALIMUMAB
     Route: 058
     Dates: start: 201609, end: 201610
  8. LASIX [Concomitant]
     Active Substance: FUROSEMIDE
     Indication: FLUID RETENTION
  9. SPIRONOLACTONE. [Concomitant]
     Active Substance: SPIRONOLACTONE
     Indication: FLUID RETENTION
  10. CYMBALTA [Concomitant]
     Active Substance: DULOXETINE HYDROCHLORIDE
     Indication: PAIN
  11. CYMBALTA [Concomitant]
     Active Substance: DULOXETINE HYDROCHLORIDE
     Indication: ANXIETY
  12. HUMIRA [Suspect]
     Active Substance: ADALIMUMAB
     Route: 058
     Dates: start: 20161026, end: 20161214
  13. HUMIRA [Suspect]
     Active Substance: ADALIMUMAB
     Route: 058
     Dates: start: 20190221
  14. ATORVASTATIN [Concomitant]
     Active Substance: ATORVASTATIN
     Indication: BLOOD CHOLESTEROL INCREASED
  15. CARVEDILOL. [Concomitant]
     Active Substance: CARVEDILOL
     Indication: HYPERTENSION

REACTIONS (34)
  - Psoriatic arthropathy [Recovered/Resolved]
  - Abnormal sensation in eye [Unknown]
  - Therapeutic response unexpected [Unknown]
  - Peripheral nerve injury [Unknown]
  - Skin warm [Unknown]
  - Pain [Unknown]
  - Trigger finger [Not Recovered/Not Resolved]
  - Synovial cyst [Unknown]
  - Procedural pain [Unknown]
  - Immunodeficiency [Unknown]
  - Oropharyngeal discomfort [Not Recovered/Not Resolved]
  - Cheilitis [Not Recovered/Not Resolved]
  - Nasal ulcer [Recovered/Resolved]
  - Cough [Not Recovered/Not Resolved]
  - Paranasal sinus discomfort [Recovered/Resolved]
  - Muscle spasms [Unknown]
  - Pain in extremity [Unknown]
  - Back pain [Unknown]
  - Skin burning sensation [Not Recovered/Not Resolved]
  - Urticaria [Not Recovered/Not Resolved]
  - Dyspnoea [Recovered/Resolved]
  - Influenza like illness [Unknown]
  - Spinal operation [Recovering/Resolving]
  - Nerve injury [Unknown]
  - Blister [Unknown]
  - Hypoaesthesia [Unknown]
  - Malaise [Unknown]
  - Paraesthesia [Unknown]
  - Dyspnoea [Unknown]
  - Psoriatic arthropathy [Unknown]
  - Psoriasis [Unknown]
  - Neck pain [Unknown]
  - Rash vesicular [Unknown]
  - Musculoskeletal pain [Unknown]

NARRATIVE: CASE EVENT DATE: 2016
